FAERS Safety Report 9285693 (Version 1)
Quarter: 2013Q2

REPORT INFORMATION
  Report Type: Spontaneous
  Country: MY (occurrence: None)
  Receive Date: 20130507
  Receipt Date: 20130507
  Transmission Date: 20140414
  Serious: Yes (Hospitalization)
  Sender: FDA-Public Use
  Company Number: VAL_02502_2013

PATIENT
  Age: 68 Year
  Sex: Male
  Weight: 55 kg

DRUGS (2)
  1. METOPROLOL (METOPROLOL-METOPROLOL TARTRATE) [Suspect]
     Indication: PRODUCT USED FOR UNKNOWN INDICATION
     Route: 048
     Dates: start: 20130318, end: 20130412
  2. GP2013+ CVP VS MABTHERA + CVP (CODE NOT BROKEN) [Suspect]
     Indication: NON-HODGKIN^S LYMPHOMA
     Dates: start: 20130321

REACTIONS (2)
  - Syncope [None]
  - Hypotension [None]
